FAERS Safety Report 5424175-0 (Version None)
Quarter: 2007Q3

REPORT INFORMATION
  Report Type: 
  Country: None (occurrence: None)
  Receive Date: 20070823
  Receipt Date: 20070812
  Transmission Date: 20080115
  Serious: Yes (Hospitalization, Other)
  Sender: FDA-Public Use
  Company Number: US-PFIZER INC-2007066892

PATIENT
  Sex: Male
  Weight: 95.5 kg

DRUGS (5)
  1. EXUBERA [Suspect]
     Indication: TYPE 2 DIABETES MELLITUS
     Route: 055
  2. GLUCOFORMIN [Concomitant]
  3. HYZAAR [Concomitant]
     Indication: HYPERTENSION
     Dosage: DAILY DOSE:50MG
  4. LANTUS [Concomitant]
     Indication: DIABETES MELLITUS
  5. LASIX [Concomitant]
     Indication: HYPERTENSION

REACTIONS (6)
  - BLOOD POTASSIUM DECREASED [None]
  - COUGH [None]
  - DYSPNOEA [None]
  - HYPOTENSION [None]
  - LOSS OF CONSCIOUSNESS [None]
  - VOMITING [None]
